FAERS Safety Report 19928424 (Version 1)
Quarter: 2021Q4

REPORT INFORMATION
  Report Type: Spontaneous
  Country: US (occurrence: US)
  Receive Date: 20211006
  Receipt Date: 20211006
  Transmission Date: 20220303
  Serious: No
  Sender: FDA-Public Use
  Company Number: None

PATIENT
  Age: 30 Year
  Sex: Female
  Weight: 60.75 kg

DRUGS (10)
  1. METHYLPHENIDATE HYDROCHLORIDE [Suspect]
     Active Substance: METHYLPHENIDATE HYDROCHLORIDE
     Indication: Attention deficit hyperactivity disorder
     Dosage: ?          QUANTITY:2 TABLET(S);
     Route: 048
     Dates: start: 20210607, end: 20211006
  2. CONCERTA [Concomitant]
     Active Substance: METHYLPHENIDATE HYDROCHLORIDE
  3. ALBUTEROL [Concomitant]
     Active Substance: ALBUTEROL
  4. SINGULAIR [Concomitant]
     Active Substance: MONTELUKAST SODIUM
  5. MIRENA [Concomitant]
     Active Substance: LEVONORGESTREL
  6. CYCLOBENZAPRINE [Concomitant]
     Active Substance: CYCLOBENZAPRINE
  7. VITAMIN D3 [Concomitant]
     Active Substance: CHOLECALCIFEROL
  8. VITAMIN B12 [Concomitant]
     Active Substance: CYANOCOBALAMIN
  9. BIOTIN [Concomitant]
     Active Substance: BIOTIN
  10. NAPROXEN SODIUM [Concomitant]
     Active Substance: NAPROXEN SODIUM

REACTIONS (12)
  - Product substitution issue [None]
  - Therapeutic product effect delayed [None]
  - Drug ineffective [None]
  - Irritability [None]
  - Decreased appetite [None]
  - Dizziness [None]
  - Feeling jittery [None]
  - Muscle tightness [None]
  - Palpitations [None]
  - Mood swings [None]
  - Insomnia [None]
  - Impaired quality of life [None]

NARRATIVE: CASE EVENT DATE: 20210621
